FAERS Safety Report 10651517 (Version 2)
Quarter: 2015Q1

REPORT INFORMATION
  Report Type: Spontaneous
  Country: US (occurrence: US)
  Receive Date: 20141215
  Receipt Date: 20150115
  Transmission Date: 20150720
  Serious: Yes (Other)
  Sender: FDA-Public Use
  Company Number: US-GLAXOSMITHKLINE-US2014GSK033364

PATIENT
  Age: 71 Year
  Sex: Female

DRUGS (5)
  1. HYPERTENSION DRUG (UNKNOWN) [Concomitant]
  2. FLOVENT HFA [Suspect]
     Active Substance: FLUTICASONE PROPIONATE
     Indication: ASTHMA
     Dosage: 2 PUFF(S), BID
     Dates: start: 1994
  3. FLOVENT HFA [Suspect]
     Active Substance: FLUTICASONE PROPIONATE
     Dosage: 2 PUFF(S), BID
  4. OMEPRAZOLE. [Concomitant]
     Active Substance: OMEPRAZOLE
  5. RANITIDINE [Concomitant]
     Active Substance: RANITIDINE\RANITIDINE HYDROCHLORIDE

REACTIONS (10)
  - Asthma [Unknown]
  - Cough [Unknown]
  - Product quality issue [Unknown]
  - Anosmia [Recovered/Resolved]
  - Stress urinary incontinence [Unknown]
  - Gastrooesophageal reflux disease [Unknown]
  - Sinus operation [Unknown]
  - Haemoptysis [Unknown]
  - Post procedural complication [Recovered/Resolved]
  - Pneumonia [Unknown]

NARRATIVE: CASE EVENT DATE: 20141111
